FAERS Safety Report 24549208 (Version 1)
Quarter: 2024Q4

REPORT INFORMATION
  Report Type: Report from Study
  Country: US (occurrence: US)
  Receive Date: 20241025
  Receipt Date: 20241025
  Transmission Date: 20250114
  Serious: Yes (Other)
  Sender: ALEXION PHARMACEUTICALS
  Company Number: US-AstraZeneca-CH-00729138A

PATIENT

DRUGS (1)
  1. ULTOMIRIS [Suspect]
     Active Substance: RAVULIZUMAB-CWVZ
     Dosage: UNK
     Route: 065

REACTIONS (4)
  - Narcolepsy [Unknown]
  - Tremor [Unknown]
  - Gait disturbance [Unknown]
  - Asthenia [Unknown]
